FAERS Safety Report 23023398 (Version 1)
Quarter: 2023Q4

REPORT INFORMATION
  Report Type: Spontaneous
  Country: US (occurrence: US)
  Receive Date: 20231003
  Receipt Date: 20231003
  Transmission Date: 20240110
  Serious: Yes (Hospitalization, Other)
  Sender: FDA-Public Use
  Company Number: US-GLAXOSMITHKLINE-US2023132437

PATIENT

DRUGS (1)
  1. BREO ELLIPTA [Suspect]
     Active Substance: FLUTICASONE FUROATE\VILANTEROL TRIFENATATE
     Indication: Dyspnoea
     Dosage: 1 DF, QD, 100-25 MCG, (30)USE 1 INHALATION BY MOUTH DAILY
     Route: 055
     Dates: start: 202201

REACTIONS (1)
  - Hiatus hernia [Recovering/Resolving]

NARRATIVE: CASE EVENT DATE: 20230906
